FAERS Safety Report 7070620-7 (Version None)
Quarter: 2010Q4

REPORT INFORMATION
  Report Type: 
  Country: None (occurrence: None)
  Receive Date: 20101029
  Receipt Date: 20101018
  Transmission Date: 20110411
  Serious: Yes (Other)
  Sender: FDA-Public Use
  Company Number: US-PFIZER INC-2010132377

PATIENT
  Sex: Male

DRUGS (6)
  1. VIAGRA [Suspect]
     Dosage: UNK
  2. BENICAR HCT [Interacting]
     Dosage: UNK
  3. CIALIS [Suspect]
     Dosage: UNK
  4. ZANTAC [Suspect]
     Dosage: UNK
  5. OMEPRAZOLE [Suspect]
     Dosage: UNK
  6. ENDURON [Suspect]
     Dosage: UNK

REACTIONS (6)
  - BARRETT'S OESOPHAGUS [None]
  - DRUG INEFFECTIVE [None]
  - DRUG INTERACTION [None]
  - FLUSHING [None]
  - GASTROOESOPHAGEAL REFLUX DISEASE [None]
  - HEADACHE [None]
